FAERS Safety Report 8714756 (Version 2)
Quarter: 2013Q2

REPORT INFORMATION
  Report Type: Spontaneous
  Country: AU (occurrence: AU)
  Receive Date: 20120809
  Receipt Date: 20130603
  Transmission Date: 20140414
  Serious: Yes (Death)
  Sender: FDA-Public Use
  Company Number: AU-BRISTOL-MYERS SQUIBB COMPANY-16830952

PATIENT
  Age: 65 Year
  Sex: Male

DRUGS (1)
  1. BARACLUDE [Suspect]
     Dosage: DURATION OF THERAPY: APPROXIMATELY 3 YEARS

REACTIONS (2)
  - Salivary gland cancer [Fatal]
  - Hepatic cancer [Fatal]
